FAERS Safety Report 9378200 (Version 1)
Quarter: 2013Q3

REPORT INFORMATION
  Report Type: Spontaneous
  Country: PL (occurrence: PL)
  Receive Date: 20130701
  Receipt Date: 20130701
  Transmission Date: 20140515
  Serious: Yes (Hospitalization)
  Sender: FDA-Public Use
  Company Number: PL-GLAXOSMITHKLINE-B0904197A

PATIENT
  Age: 19 Year
  Sex: Male

DRUGS (1)
  1. DUAC [Suspect]
     Indication: ACNE
     Route: 061

REACTIONS (1)
  - Epilepsy [Unknown]
